FAERS Safety Report 18746860 (Version 1)
Quarter: 2021Q1

REPORT INFORMATION
  Report Type: Spontaneous
  Country: US (occurrence: US)
  Receive Date: 20210115
  Receipt Date: 20210115
  Transmission Date: 20210419
  Serious: No
  Sender: FDA-Public Use
  Company Number: US-PARI RESPIRATORY EQUIPMENT, INC.-2020PAR00027

PATIENT
  Sex: Female

DRUGS (1)
  1. KITABIS PAK [Suspect]
     Active Substance: TOBRAMYCIN
     Indication: RESPIRATORY TRACT MALFORMATION
     Dosage: 300 MG, 2X/DAY

REACTIONS (2)
  - Off label use [Recovered/Resolved]
  - Dyspnoea [Unknown]
